FAERS Safety Report 14098333 (Version 2)
Quarter: 2017Q4

REPORT INFORMATION
  Report Type: Spontaneous
  Country: US (occurrence: US)
  Receive Date: 20171016
  Receipt Date: 20171018
  Transmission Date: 20180321
  Serious: No
  Sender: FDA-Public Use
  Company Number: US-AMGEN-USASP2017049193

PATIENT
  Age: 51 Year
  Sex: Female

DRUGS (3)
  1. ATIVAN [Concomitant]
     Active Substance: LORAZEPAM
  2. BONIVA [Concomitant]
     Active Substance: IBANDRONATE SODIUM
  3. PROLIA [Suspect]
     Active Substance: DENOSUMAB
     Indication: OSTEOPOROSIS POSTMENOPAUSAL
     Dosage: 60 MG, Q6MO
     Route: 065
     Dates: start: 2015

REACTIONS (8)
  - Abdominal rigidity [Unknown]
  - Arthralgia [Not Recovered/Not Resolved]
  - Abdominal distension [Unknown]
  - Mood altered [Unknown]
  - Myalgia [Unknown]
  - Chills [Unknown]
  - Polyuria [Unknown]
  - Joint stiffness [Unknown]
